FAERS Safety Report 9202170 (Version 3)
Quarter: 2013Q3

REPORT INFORMATION
  Report Type: Spontaneous
  Country: US (occurrence: None)
  Receive Date: 20130326
  Receipt Date: 20130711
  Transmission Date: 20140515
  Serious: Yes (Hospitalization, Other)
  Sender: FDA-Public Use
  Company Number: DSU-2013-02289

PATIENT
  Age: 63 Year
  Sex: Female
  Weight: 62.14 kg

DRUGS (3)
  1. BENICAR [Suspect]
     Indication: HYPERTENSION
     Route: 048
     Dates: start: 200903, end: 201210
  2. WELCHOL (COLESEVELAM HYDROCHLORIDE) (625 MILLIGRAM, TABLET) (COLESEVELAM HYDROCHLORIDE) [Suspect]
     Indication: PRODUCT USED FOR UNKNOWN INDICATION
     Dosage: 1250 MG, BID
     Route: 048
  3. IMODIUM (LOPERAMIDE HYDROCHLORIDE) (LOPERAMIDE) [Suspect]
     Indication: DIARRHOEA
     Dosage: 2

REACTIONS (16)
  - Diarrhoea [None]
  - Malnutrition [None]
  - Transaminases abnormal [None]
  - Blood bilirubin abnormal [None]
  - Liver disorder [None]
  - Malabsorption [None]
  - Weight increased [None]
  - Hypokalaemia [None]
  - Hyponatraemia [None]
  - Pericardial effusion [None]
  - Cholelithiasis [None]
  - Drug-induced liver injury [None]
  - Asthenia [None]
  - Weight decreased [None]
  - Nausea [None]
  - Blood immunoglobulin G increased [None]
